FAERS Safety Report 9377245 (Version 2)
Quarter: 2013Q3

REPORT INFORMATION
  Report Type: Spontaneous
  Country: US (occurrence: US)
  Receive Date: 20130701
  Receipt Date: 20130927
  Transmission Date: 20140515
  Serious: No
  Sender: FDA-Public Use
  Company Number: US-PFIZER INC-2013193001

PATIENT
  Age: 54 Year
  Sex: Female
  Weight: 127 kg

DRUGS (2)
  1. CELEBREX [Suspect]
     Indication: BACK DISORDER
     Dosage: 200 MG, DAILY
     Dates: end: 20130624
  2. BENICAR HCT [Concomitant]
     Indication: HYPERTENSION
     Dosage: OLMESARTAN MEDOXOMIL 40MG / HYDROCHLOROTHIAZIDE 12.5 MG, 1X/DAY.

REACTIONS (1)
  - Renal function test abnormal [Unknown]
